FAERS Safety Report 9495231 (Version 1)
Quarter: 2013Q3

REPORT INFORMATION
  Report Type: Spontaneous
  Country: US (occurrence: US)
  Receive Date: 20130903
  Receipt Date: 20130903
  Transmission Date: 20140515
  Serious: No
  Sender: FDA-Public Use
  Company Number: US-009507513-1309USA001076

PATIENT
  Sex: Female

DRUGS (2)
  1. LOTRIMIN ULTRA [Suspect]
     Indication: BURNING SENSATION
     Dosage: UNK, UNKNOWN
     Route: 061
     Dates: start: 20130822
  2. LOTRIMIN ULTRA [Suspect]
     Indication: PRURITUS

REACTIONS (1)
  - Expired drug administered [Unknown]
